FAERS Safety Report 8602853-X (Version None)
Quarter: 2012Q3

REPORT INFORMATION
  Report Type: 
  Country: None (occurrence: None)
  Receive Date: 20120817
  Receipt Date: 20120706
  Transmission Date: 20120928
  Serious: Yes (Hospitalization, Other)
  Sender: FDA-Public Use
  Company Number: US-GLAXOSMITHKLINE-A0983766A

PATIENT
  Age: 29 Year
  Sex: Female

DRUGS (3)
  1. DEPAKOTE ER [Concomitant]
     Dosage: 1250MG PER DAY
  2. POTIGA [Suspect]
     Indication: PARTIAL SEIZURES
     Dosage: 200MG TWICE PER DAY
     Route: 048
     Dates: start: 20120604, end: 20120101
  3. TOPAMAX [Concomitant]
     Dosage: 200MG TWICE PER DAY

REACTIONS (4)
  - CATHETER PLACEMENT [None]
  - SEPSIS [None]
  - URINARY RETENTION [None]
  - URINARY TRACT INFECTION [None]
